FAERS Safety Report 5902888-1 (Version None)
Quarter: 2008Q3

REPORT INFORMATION
  Report Type: 
  Country: None (occurrence: None)
  Receive Date: 20080930
  Receipt Date: 20080922
  Transmission Date: 20090109
  Serious: Yes (Other)
  Sender: FDA-Public Use
  Company Number: PHHY2008GB22498

PATIENT
  Sex: Female
  Weight: 2.95 kg

DRUGS (1)
  1. CLOZARIL [Suspect]
     Indication: SCHIZOPHRENIA

REACTIONS (5)
  - CAESAREAN SECTION [None]
  - FOETAL DISTRESS SYNDROME [None]
  - FOETAL HYPOKINESIA [None]
  - MATERNAL DRUGS AFFECTING FOETUS [None]
  - WITHDRAWAL SYNDROME [None]
